FAERS Safety Report 14330131 (Version 6)
Quarter: 2022Q3

REPORT INFORMATION
  Report Type: Spontaneous
  Country: US (occurrence: US)
  Receive Date: 20171227
  Receipt Date: 20220907
  Transmission Date: 20221027
  Serious: Yes (Other)
  Sender: FDA-Public Use
  Company Number: US-BIOMARINAP-US-2015-105984

PATIENT

DRUGS (5)
  1. ALDURAZYME [Suspect]
     Active Substance: LARONIDASE
     Indication: Mucopolysaccharidosis I
     Dosage: 81.20; Q1 (UNITS NOT GIVEN)
     Route: 041
     Dates: start: 20040218
  2. ALDURAZYME [Suspect]
     Active Substance: LARONIDASE
     Dosage: 75.4 MILLIGRAM
     Route: 041
     Dates: start: 20150324
  3. ALDURAZYME [Suspect]
     Active Substance: LARONIDASE
     Dosage: 55.1 MILLIGRAM, QW
     Route: 041
     Dates: start: 20150401
  4. ALDURAZYME [Suspect]
     Active Substance: LARONIDASE
     Dosage: UNK
     Route: 065
     Dates: start: 20171114
  5. ALDURAZYME [Suspect]
     Active Substance: LARONIDASE
     Dosage: DOSE/UNIT: 58 FREQUENCY: WEEKLY
     Route: 042
     Dates: start: 20210505

REACTIONS (4)
  - Weight increased [Recovered/Resolved]
  - Cough [Recovered/Resolved]
  - Chest pain [Recovered/Resolved]
  - Weight decreased [Recovering/Resolving]

NARRATIVE: CASE EVENT DATE: 20140301
